FAERS Safety Report 12572669 (Version 2)
Quarter: 2016Q3

REPORT INFORMATION
  Report Type: Report from Study
  Country: BR (occurrence: BR)
  Receive Date: 20160720
  Receipt Date: 20160726
  Transmission Date: 20161109
  Serious: Yes (Other)
  Sender: FDA-Public Use
  Company Number: BR-ROCHE-1796652

PATIENT
  Age: 44 Year
  Sex: Female

DRUGS (3)
  1. MABTHERA [Suspect]
     Active Substance: RITUXIMAB
     Dosage: RESTARTED
     Route: 042
  2. MABTHERA [Suspect]
     Active Substance: RITUXIMAB
     Indication: RHEUMATOID ARTHRITIS
     Route: 042
     Dates: start: 20160715, end: 20160715
  3. ENALAPRIL [Concomitant]
     Active Substance: ENALAPRIL
     Dosage: ANTI-HYPERTENSIVE
     Route: 048
     Dates: start: 2012

REACTIONS (4)
  - Abdominal pain [Recovered/Resolved]
  - Tachycardia [Unknown]
  - Abdominal discomfort [Recovered/Resolved]
  - Dyspnoea [Recovered/Resolved]

NARRATIVE: CASE EVENT DATE: 20160715
